FAERS Safety Report 5402254-1 (Version None)
Quarter: 2007Q3

REPORT INFORMATION
  Report Type: 
  Country: None (occurrence: None)
  Receive Date: 20070801
  Receipt Date: 20070723
  Transmission Date: 20080115
  Serious: Yes (Other)
  Sender: FDA-Public Use
  Company Number: GB-JNJFOC-20070100997

PATIENT
  Age: 69 Year
  Sex: Female

DRUGS (6)
  1. ITRACONAZOLE [Suspect]
     Indication: OESOPHAGEAL CANDIDIASIS
     Route: 048
     Dates: start: 20061027, end: 20061110
  2. SIMVASTATIN [Suspect]
     Indication: HYPERLIPIDAEMIA
     Route: 048
     Dates: start: 20041101, end: 20061120
  3. BENDROFLUAZIDE [Concomitant]
     Indication: HYPERTENSION
     Route: 048
  4. CITALOPRAM HYDROBROMIDE [Concomitant]
     Route: 048
  5. CITALOPRAM HYDROBROMIDE [Concomitant]
     Route: 048
  6. CITALOPRAM HYDROBROMIDE [Concomitant]
     Indication: DEPRESSED MOOD
     Route: 048

REACTIONS (8)
  - ALANINE AMINOTRANSFERASE INCREASED [None]
  - ASPARTATE AMINOTRANSFERASE INCREASED [None]
  - BLOOD CREATINE PHOSPHOKINASE INCREASED [None]
  - MALAISE [None]
  - MUSCLE ATROPHY [None]
  - MUSCULAR WEAKNESS [None]
  - MYALGIA [None]
  - PROTHROMBIN TIME PROLONGED [None]
